FAERS Safety Report 15704681 (Version 3)
Quarter: 2019Q1

REPORT INFORMATION
  Report Type: Spontaneous
  Country: JP (occurrence: JP)
  Receive Date: 20181210
  Receipt Date: 20190311
  Transmission Date: 20190417
  Serious: Yes (Hospitalization, Other)
  Sender: FDA-Public Use
  Company Number: JP-GLAXOSMITHKLINE-JP2018JPN218674

PATIENT
  Age: 33 Year
  Sex: Female

DRUGS (5)
  1. BETAMETHASONE. [Concomitant]
     Active Substance: BETAMETHASONE
     Indication: PROPHYLAXIS
     Dosage: UNK
  2. NICARDIPINE HYDROCHLORIDE. [Concomitant]
     Active Substance: NICARDIPINE HYDROCHLORIDE
     Indication: PROPHYLAXIS
     Dosage: UNK
  3. LEVETIRACETAM. [Concomitant]
     Active Substance: LEVETIRACETAM
     Dosage: UNK
  4. LAMICTAL [Suspect]
     Active Substance: LAMOTRIGINE
     Dosage: 200 MG, 1D
     Route: 048
  5. NICARDIPINE HYDROCHLORIDE. [Concomitant]
     Active Substance: NICARDIPINE HYDROCHLORIDE
     Indication: BLOOD PRESSURE MANAGEMENT

REACTIONS (13)
  - Cerebral arteriovenous malformation haemorrhagic [Recovering/Resolving]
  - Cerebral ventricular rupture [Recovered/Resolved]
  - Condition aggravated [Recovering/Resolving]
  - Vomiting [Unknown]
  - Maternal exposure during pregnancy [Unknown]
  - Gait disturbance [Recovering/Resolving]
  - Hemiplegia [Recovering/Resolving]
  - Sinus tachycardia [Unknown]
  - Anaemia [Unknown]
  - Premature delivery [Unknown]
  - Cerebral haemorrhage [Recovered/Resolved]
  - Hemianaesthesia [Recovering/Resolving]
  - Headache [Unknown]
